FAERS Safety Report 9134986 (Version 1)
Quarter: 2013Q1

REPORT INFORMATION
  Report Type: Spontaneous
  Country: US (occurrence: US)
  Receive Date: 20130304
  Receipt Date: 20130304
  Transmission Date: 20140127
  Serious: Yes (Hospitalization, Congenital Anomaly, Other)
  Sender: FDA-Public Use
  Company Number: US-PFIZER INC-2013072099

PATIENT
  Sex: Female

DRUGS (10)
  1. ZOLOFT [Suspect]
     Indication: DEPRESSION
     Dosage: UNK
     Route: 064
     Dates: start: 201101, end: 201109
  2. SERTRALINE HCL [Suspect]
     Indication: DEPRESSION
     Dosage: UNK
     Route: 064
     Dates: start: 201101
  3. ONDANSETRON HYDROCHLORIDE [Concomitant]
     Dosage: UNK
     Route: 064
  4. PROMETHAZINE [Concomitant]
     Dosage: UNK
     Route: 064
  5. PRENATAL VITAMINS [Concomitant]
     Dosage: UNK
     Route: 064
  6. FLUVIRIN [Concomitant]
     Dosage: UNK
     Route: 064
  7. FAMOTIDINE [Concomitant]
     Dosage: UNK
     Route: 064
  8. OXYCODONE-ACETAMINOPHEN [Concomitant]
     Dosage: UNK
     Route: 064
  9. IBUPROFEN [Concomitant]
     Dosage: UNK
     Route: 064
  10. NIFEDIPINE ER [Concomitant]
     Dosage: UNK
     Route: 064

REACTIONS (4)
  - Maternal exposure during pregnancy [Unknown]
  - Transposition of the great vessels [Unknown]
  - Patent ductus arteriosus [Unknown]
  - Atrial septal defect [Unknown]
